FAERS Safety Report 18797682 (Version 2)
Quarter: 2021Q1

REPORT INFORMATION
  Report Type: Spontaneous
  Country: CH (occurrence: CH)
  Receive Date: 20210128
  Receipt Date: 20210327
  Transmission Date: 20210419
  Serious: Yes (Life-Threatening, Hospitalization, Other)
  Sender: FDA-Public Use
  Company Number: CH-ABBVIE-21K-151-3749166-00

PATIENT
  Age: 32 Year
  Sex: Female

DRUGS (1)
  1. LUCRIN DEPOT [Suspect]
     Active Substance: LEUPROLIDE ACETATE
     Indication: UTERINE LEIOMYOMA
     Route: 065
     Dates: start: 202011, end: 202012

REACTIONS (5)
  - Torsade de pointes [Recovering/Resolving]
  - Aspiration [Unknown]
  - Pneumonia aspiration [Recovered/Resolved]
  - Cardiac arrest [Recovering/Resolving]
  - Lung consolidation [Recovered/Resolved]

NARRATIVE: CASE EVENT DATE: 20201231
